FAERS Safety Report 14619110 (Version 1)
Quarter: 2018Q1

REPORT INFORMATION
  Report Type: Spontaneous
  Country: DE (occurrence: DE)
  Receive Date: 20180309
  Receipt Date: 20180309
  Transmission Date: 20180509
  Serious: Yes (Hospitalization)
  Sender: FDA-Public Use
  Company Number: DE-BAYER-2018-040135

PATIENT
  Age: 48 Year
  Sex: Male
  Weight: 95 kg

DRUGS (2)
  1. CIPROBAY 500 MG [Suspect]
     Active Substance: CIPROFLOXACIN
     Dosage: 10000 MG, UNK
     Route: 048
     Dates: start: 201507, end: 201507
  2. CIPROBAY 500 MG [Suspect]
     Active Substance: CIPROFLOXACIN
     Dosage: 10000 MG, UNK
     Route: 048
     Dates: start: 201611, end: 201611

REACTIONS (4)
  - Nervous system disorder [Not Recovered/Not Resolved]
  - Depression [Not Recovered/Not Resolved]
  - Arthralgia [Not Recovered/Not Resolved]
  - Tendon rupture [Not Recovered/Not Resolved]

NARRATIVE: CASE EVENT DATE: 20170816
